FAERS Safety Report 20081909 (Version 1)
Quarter: 2021Q4

REPORT INFORMATION
  Report Type: Spontaneous
  Country: US (occurrence: None)
  Receive Date: 20211117
  Receipt Date: 20211117
  Transmission Date: 20220303
  Serious: Yes (Hospitalization)
  Sender: FDA-Public Use
  Company Number: None

PATIENT
  Sex: Male

DRUGS (7)
  1. GAMMAGARD LIQUID [Suspect]
     Active Substance: HUMAN IMMUNOGLOBULIN G
     Dosage: 20 GM/200ML- INFUSE 40 GRAMS (400ML) INTRAVENOUSLY DAILY FOR 2 DAYS EVERY 4 WEEKS
     Route: 042
     Dates: start: 20210417
  2. HEPARIN LOCK FLUSH [Concomitant]
     Active Substance: HEPARIN SODIUM
  3. MONOJECT PHARMA GRADE FLU [Concomitant]
  4. MONOJECT PREFILL ADVANCED [Concomitant]
  5. NORMAL SALINE I.V. FLUSH [Concomitant]
  6. SODIUM CHLORIDE [Concomitant]
     Active Substance: SODIUM CHLORIDE
  7. SODIUM CHLORIDE [Concomitant]
     Active Substance: SODIUM CHLORIDE

REACTIONS (1)
  - Hospitalisation [None]
